FAERS Safety Report 9165095 (Version 3)
Quarter: 2013Q2

REPORT INFORMATION
  Report Type: Spontaneous
  Country: GB (occurrence: None)
  Receive Date: 20130228
  Receipt Date: 20130408
  Transmission Date: 20140414
  Serious: Yes (Hospitalization, Other)
  Sender: FDA-Public Use
  Company Number: GER/UKI/13/0028195

PATIENT
  Age: 19 Year
  Sex: Male
  Weight: 70 kg

DRUGS (2)
  1. OMEPRAZOLE [Suspect]
     Indication: ABDOMINAL DISTENSION
     Route: 048
  2. ESOMEPRAZOLE [Suspect]
     Indication: ABDOMINAL DISTENSION
     Route: 048
     Dates: start: 20130207, end: 20130208

REACTIONS (2)
  - Stevens-Johnson syndrome [None]
  - Cytomegalovirus infection [None]
